FAERS Safety Report 20459715 (Version 4)
Quarter: 2022Q2

REPORT INFORMATION
  Report Type: Spontaneous
  Country: US (occurrence: US)
  Receive Date: 20220211
  Receipt Date: 20220530
  Transmission Date: 20220720
  Serious: No
  Sender: FDA-Public Use
  Company Number: US-PHARMING-PHAUS2022000089

PATIENT

DRUGS (6)
  1. RUCONEST [Suspect]
     Active Substance: HUMAN C1-ESTERASE INHIBITOR
     Indication: Hereditary angioedema
     Dosage: 3700 IU, TWICE WEEKLY
     Route: 042
     Dates: start: 20200730
  2. RUCONEST [Suspect]
     Active Substance: HUMAN C1-ESTERASE INHIBITOR
     Dosage: 3700 IU, TWICE WEEKLY
     Route: 042
     Dates: start: 20200730
  3. RUCONEST [Suspect]
     Active Substance: HUMAN C1-ESTERASE INHIBITOR
     Dosage: 3700 IU, TWICE WEEKLY
     Route: 042
     Dates: start: 20200730
  4. RUCONEST [Suspect]
     Active Substance: HUMAN C1-ESTERASE INHIBITOR
     Dosage: 3700 IU, TWICE WEEKLY
     Route: 042
     Dates: start: 20200730
  5. RUCONEST [Suspect]
     Active Substance: HUMAN C1-ESTERASE INHIBITOR
     Dosage: 3700 IU, TWICE WEEKLY
     Route: 042
     Dates: start: 20200730
  6. RUCONEST [Suspect]
     Active Substance: HUMAN C1-ESTERASE INHIBITOR
     Dosage: 3700 IU, TWICE WEEKLY
     Route: 042
     Dates: start: 20200730

REACTIONS (3)
  - Malaise [Unknown]
  - Product dose omission issue [Unknown]
  - Intentional product use issue [Unknown]
